FAERS Safety Report 23442033 (Version 2)
Quarter: 2024Q1

REPORT INFORMATION
  Report Type: Spontaneous
  Country: US (occurrence: US)
  Receive Date: 20240125
  Receipt Date: 20240208
  Transmission Date: 20240409
  Serious: Yes (Other)
  Sender: FDA-Public Use
  Company Number: US-ABBVIE-5594692

PATIENT
  Sex: Female
  Weight: 63 kg

DRUGS (7)
  1. ASACOL [Suspect]
     Active Substance: MESALAMINE
     Indication: Colitis ulcerative
     Dosage: FORM STRENGTH: 800 MILLIGRAM
     Route: 065
  2. ASACOL [Suspect]
     Active Substance: MESALAMINE
     Indication: Colitis ulcerative
     Dosage: AT LEAST 15 YEARS AGO?FORM STRENGTH: 800 MILLIGRAM
     Route: 065
     Dates: start: 2009
  3. ASACOL [Suspect]
     Active Substance: MESALAMINE
     Indication: Colitis ulcerative
     Dosage: TIME INTERVAL: 0.33333333 DAYS: FORM STRENGTH: 800 MILLIGRAM
     Route: 065
  4. ASACOL [Suspect]
     Active Substance: MESALAMINE
     Indication: Colitis ulcerative
     Dosage: FORM STRENGTH: 800 MILLIGRAM
     Route: 065
  5. ASACOL HD [Suspect]
     Active Substance: MESALAMINE
     Indication: Colitis ulcerative
     Dosage: 800 MILLIGRAM
     Route: 065
  6. ASACOL HD [Suspect]
     Active Substance: MESALAMINE
     Indication: Colitis ulcerative
     Dosage: 800 MILLIGRAM
     Route: 065
     Dates: start: 2019
  7. ASACOL [Suspect]
     Active Substance: MESALAMINE
     Indication: Colitis ulcerative
     Dosage: 800 MILLIGRAM
     Route: 065
     Dates: start: 2019

REACTIONS (3)
  - Polyp [Unknown]
  - Therapeutic product effect incomplete [Unknown]
  - General symptom [Not Recovered/Not Resolved]
